FAERS Safety Report 24091545 (Version 1)
Quarter: 2024Q3

REPORT INFORMATION
  Report Type: Spontaneous
  Country: US (occurrence: US)
  Receive Date: 20240715
  Receipt Date: 20240715
  Transmission Date: 20241017
  Serious: Yes (Life-Threatening, Hospitalization, Other)
  Sender: PFIZER
  Company Number: US-PFIZER INC-PV202400090576

PATIENT
  Age: 14 Year
  Sex: Male

DRUGS (11)
  1. METHOTREXATE SODIUM [Suspect]
     Active Substance: METHOTREXATE SODIUM
     Indication: B-cell type acute leukaemia
     Dosage: HIGH-DOSE (HD)
  2. METHOTREXATE SODIUM [Suspect]
     Active Substance: METHOTREXATE SODIUM
     Dosage: DAY 15 HD-MTX (DOSE 2 OF 4)
  3. METHOTREXATE SODIUM [Suspect]
     Active Substance: METHOTREXATE SODIUM
     Dosage: ON DAY 43, FINAL DOSE OF HD-MTX
  4. VINCRISTINE SULFATE [Suspect]
     Active Substance: VINCRISTINE SULFATE
     Indication: B-cell type acute leukaemia
     Dosage: UNK UNK, CYCLIC
  5. METHOTREXATE [Suspect]
     Active Substance: METHOTREXATE
     Indication: B-cell type acute leukaemia
     Dosage: 25 MG/M2, CYCLIC, MAXIMUM TOLERATED DOSE
     Route: 048
  6. MERCAPTOPURINE [Suspect]
     Active Substance: MERCAPTOPURINE
     Indication: B-cell type acute leukaemia
     Dosage: 60 MG/M2, CYCLIC, PER DAY ON DAYS 1 TO 14 AND 29 TO 42
  7. MERCAPTOPURINE [Suspect]
     Active Substance: MERCAPTOPURINE
     Dosage: 25 MG/M2, CYCLIC, PER DAY PER PROTOCOL
  8. MERCAPTOPURINE [Suspect]
     Active Substance: MERCAPTOPURINE
     Dosage: 30 MG/M2, CYCLIC, PER WEEK
  9. MERCAPTOPURINE [Suspect]
     Active Substance: MERCAPTOPURINE
     Dosage: 30 MG/M2, CYCLIC, PER DAY
  10. DEFIBROTIDE [Concomitant]
     Active Substance: DEFIBROTIDE (BOVINE)
     Dosage: UNK
  11. FUROSEMIDE [Concomitant]
     Active Substance: FUROSEMIDE
     Indication: Capillary leak syndrome
     Dosage: EVERY 6 HOURS

REACTIONS (8)
  - Cytopenia [Unknown]
  - Pyrexia [Unknown]
  - Hepatotoxicity [Unknown]
  - Nausea [Unknown]
  - Vomiting [Unknown]
  - Pancytopenia [Unknown]
  - Hypertransaminasaemia [Unknown]
  - Fatigue [Unknown]
